FAERS Safety Report 5494767-1 (Version None)
Quarter: 2007Q4

REPORT INFORMATION
  Report Type: 
  Country: None (occurrence: None)
  Receive Date: 20071015
  Receipt Date: 20070821
  Transmission Date: 20080405
  Serious: No
  Sender: FDA-Public Use
  Company Number: 2007SP002929

PATIENT
  Age: 51 Year
  Sex: Female

DRUGS (3)
  1. LUNESTA [Suspect]
     Dosage: 2 MG 1X ORAL
     Route: 048
     Dates: start: 20070701, end: 20070701
  2. SSRI [Concomitant]
  3. AMBIEN [Concomitant]

REACTIONS (3)
  - FATIGUE [None]
  - HANGOVER [None]
  - TENSION [None]
